FAERS Safety Report 24655005 (Version 3)
Quarter: 2025Q1

REPORT INFORMATION
  Report Type: Report from Study
  Country: US (occurrence: US)
  Receive Date: 20241122
  Receipt Date: 20250326
  Transmission Date: 20250408
  Serious: Yes (Hospitalization, Other)
  Sender: ABBVIE
  Company Number: US-ABBVIE-6009381

PATIENT
  Age: 59 Year
  Sex: Female

DRUGS (5)
  1. RINVOQ [Suspect]
     Active Substance: UPADACITINIB
     Indication: Rheumatoid arthritis
     Dosage: FORM STRENGTH: 15MG
     Route: 048
     Dates: start: 20241001, end: 20241031
  2. RINVOQ [Suspect]
     Active Substance: UPADACITINIB
     Indication: Rheumatoid arthritis
     Dosage: FORM STRENGTH: 15MG LAST ADMIN DATE 2024
     Route: 048
     Dates: start: 20241114
  3. RINVOQ [Suspect]
     Active Substance: UPADACITINIB
     Indication: Rheumatoid arthritis
     Dosage: FORM STRENGTH: 15MG, LAST ADMIN DATE 2024
     Route: 048
     Dates: start: 202409
  4. RINVOQ [Suspect]
     Active Substance: UPADACITINIB
     Indication: Rheumatoid arthritis
     Dosage: FORM STRENGTH: 15MG
     Route: 048
     Dates: start: 20250110, end: 202502
  5. RINVOQ [Suspect]
     Active Substance: UPADACITINIB
     Indication: Rheumatoid arthritis
     Dosage: FORM STRENGTH: 15MG?FIRST ADMIN DATE 2025
     Route: 048

REACTIONS (3)
  - Hip arthroplasty [Unknown]
  - Fall [Recovering/Resolving]
  - Rib fracture [Recovering/Resolving]

NARRATIVE: CASE EVENT DATE: 20240101
